FAERS Safety Report 8151024-2 (Version None)
Quarter: 2012Q1

REPORT INFORMATION
  Report Type: 
  Country: None (occurrence: None)
  Receive Date: 20120220
  Receipt Date: 20120215
  Transmission Date: 20120608
  Serious: Yes (Hospitalization, Other)
  Sender: FDA-Public Use
  Company Number: CA-ABBOTT-12P-028-0901366-00

PATIENT
  Age: 68 Year
  Sex: Male
  Weight: 73 kg

DRUGS (8)
  1. LIPITOR [Concomitant]
     Indication: HYPERLIPIDAEMIA
     Route: 048
     Dates: start: 20040101
  2. LUPRON DEPOT [Suspect]
     Dates: start: 20020301, end: 20061001
  3. LUPRON DEPOT [Suspect]
     Dosage: INTERMITTENT LUPRON
     Dates: start: 19960501, end: 20010601
  4. ASPIRIN [Concomitant]
     Indication: PROPHYLAXIS
     Route: 048
     Dates: start: 20111001
  5. LUPRON DEPOT [Suspect]
     Indication: PROSTATE CANCER
     Dates: start: 20070126
  6. MULTISURE FOR MEN [Concomitant]
     Indication: PROPHYLAXIS
     Route: 048
     Dates: start: 20061107
  7. LORAZEPAM [Concomitant]
     Indication: ANXIETY
     Route: 048
     Dates: start: 19860101
  8. BISOPROLOL FUMARATE [Concomitant]
     Indication: HYPERTENSION
     Route: 048
     Dates: start: 20111001

REACTIONS (16)
  - DIARRHOEA HAEMORRHAGIC [None]
  - CARDIAC FAILURE CONGESTIVE [None]
  - RENAL FAILURE [None]
  - CUSHINGOID [None]
  - RASH MACULO-PAPULAR [None]
  - COLITIS ISCHAEMIC [None]
  - OBSTRUCTIVE UROPATHY [None]
  - COLON CANCER [None]
  - HYPERLIPIDAEMIA [None]
  - ASTHENIA [None]
  - ESCHERICHIA INFECTION [None]
  - ENDOCARDITIS BACTERIAL [None]
  - NEUTROPENIA [None]
  - PROSTATE CANCER METASTATIC [None]
  - RASH ERYTHEMATOUS [None]
  - STAPHYLOCOCCAL SEPSIS [None]
